FAERS Safety Report 24660372 (Version 1)
Quarter: 2024Q4

REPORT INFORMATION
  Report Type: Spontaneous
  Country: US (occurrence: None)
  Receive Date: 20241124
  Receipt Date: 20241124
  Transmission Date: 20250115
  Serious: No
  Sender: Public
  Company Number: None

PATIENT
  Age: 65 Year
  Sex: Male
  Weight: 69.75 kg

DRUGS (4)
  1. CIPRO [Suspect]
     Active Substance: CIPROFLOXACIN HYDROCHLORIDE
     Indication: Diverticulitis
  2. AMOXICILLIN [Suspect]
     Active Substance: AMOXICILLIN
  3. PROBIOTICS NOS [Concomitant]
     Active Substance: PROBIOTICS NOS
  4. VITAMINS [Concomitant]
     Active Substance: VITAMINS

REACTIONS (2)
  - Pain [None]
  - Gastrointestinal inflammation [None]

NARRATIVE: CASE EVENT DATE: 20240802
